FAERS Safety Report 5637602-0 (Version None)
Quarter: 2008Q1

REPORT INFORMATION
  Report Type: 
  Country: None (occurrence: None)
  Receive Date: 20080225
  Receipt Date: 20080220
  Transmission Date: 20080703
  Serious: Yes (Hospitalization)
  Sender: FDA-Public Use
  Company Number: US-BRISTOL-MYERS SQUIBB COMPANY-13491295

PATIENT
  Age: 52 Year
  Sex: Female
  Weight: 79 kg

DRUGS (2)
  1. CETUXIMAB [Suspect]
     Indication: CERVIX CARCINOMA
     Dosage: 468 MG D1 468 MG D2
     Route: 042
     Dates: start: 20060519, end: 20060519
  2. CISPLATIN [Suspect]
     Indication: CERVIX CARCINOMA
     Dosage: 55 MG DAY 1 55 MG DAY 8 LAST WEEK OF C8 NOT GIVEN DUE TO HOSPITALIZATION
     Route: 042
     Dates: start: 20060519, end: 20060519

REACTIONS (2)
  - BACK PAIN [None]
  - URETERIC OBSTRUCTION [None]
